FAERS Safety Report 18219649 (Version 5)
Quarter: 2024Q2

REPORT INFORMATION
  Report Type: Report from Study
  Country: AU (occurrence: AU)
  Receive Date: 20200901
  Receipt Date: 20240603
  Transmission Date: 20240716
  Serious: Yes (Other)
  Sender: FDA-Public Use
  Company Number: AU-JNJFOC-20200802913

PATIENT
  Age: 51 Year
  Sex: Female

DRUGS (1)
  1. SIMPONI [Suspect]
     Active Substance: GOLIMUMAB
     Indication: Axial spondyloarthritis
     Route: 058
     Dates: start: 20200115

REACTIONS (12)
  - Staphylococcal infection [Unknown]
  - Endometrial hyperplasia [Not Recovered/Not Resolved]
  - Polyp [Unknown]
  - Rhinorrhoea [Not Recovered/Not Resolved]
  - Sneezing [Recovered/Resolved]
  - Cough [Not Recovered/Not Resolved]
  - Headache [Recovered/Resolved]
  - Uterine mass [Recovering/Resolving]
  - Infection [Recovering/Resolving]
  - Haemorrhoids [Unknown]
  - Sleep apnoea syndrome [Unknown]
  - Arthralgia [Unknown]
